FAERS Safety Report 5678078-7 (Version None)
Quarter: 2008Q1

REPORT INFORMATION
  Report Type: 
  Country: None (occurrence: None)
  Receive Date: 20080319
  Receipt Date: 20080305
  Transmission Date: 20080703
  Serious: Yes (Hospitalization, Other)
  Sender: FDA-Public Use
  Company Number: RB-8870-2008

PATIENT
  Age: 34 Year
  Sex: Male

DRUGS (1)
  1. SUBUTEX [Suspect]
     Indication: DRUG WITHDRAWAL MAINTENANCE THERAPY
     Dosage: SUBLINGUAL TABLET 6 MG QD INTRAVENOUS (NOT OTHERWISE SPECIFIED)
     Route: 042

REACTIONS (7)
  - ACINETOBACTER INFECTION [None]
  - BACTERAEMIA [None]
  - MYALGIA [None]
  - PURPURA [None]
  - PYREXIA [None]
  - STAPHYLOCOCCAL INFECTION [None]
  - SUBSTANCE ABUSE [None]
